FAERS Safety Report 6241073-3 (Version None)
Quarter: 2009Q2

REPORT INFORMATION
  Report Type: 
  Country: None (occurrence: None)
  Receive Date: 20090619
  Receipt Date: 20090605
  Transmission Date: 20091009
  Serious: Yes (Hospitalization)
  Sender: FDA-Public Use
  Company Number: CERZ-1000668

PATIENT
  Age: 73 Year
  Sex: Female
  Weight: 77.3 kg

DRUGS (1)
  1. CEREZYME [Suspect]
     Indication: GAUCHER'S DISEASE
     Dosage: 3600 U, Q2W, INTRAVENOUS
     Route: 042
     Dates: start: 20071201

REACTIONS (6)
  - CARDIAC ARREST [None]
  - CHONDROPATHY [None]
  - CORONARY ARTERY DISEASE [None]
  - DEHYDRATION [None]
  - HYPONATRAEMIA [None]
  - LOWER LIMB FRACTURE [None]
